FAERS Safety Report 15754920 (Version 1)
Quarter: 2018Q4

REPORT INFORMATION
  Report Type: Spontaneous
  Country: GB (occurrence: GB)
  Receive Date: 20181224
  Receipt Date: 20181224
  Transmission Date: 20190205
  Serious: Yes (Other)
  Sender: FDA-Public Use
  Company Number: GB-ACCORD-097377

PATIENT
  Age: 74 Year
  Sex: Female
  Weight: 110 kg

DRUGS (11)
  1. PIVMECILLINAM/PIVMECILLINAM HYDROCHLORIDE [Concomitant]
     Dosage: 400MG IMMEDIATELY THEN 200MG 8 HOURLY 7 DAYS
     Dates: start: 20170907, end: 20170914
  2. NITROFURANTOIN/NITROFURANTOIN SODIUM [Concomitant]
     Dosage: NIGHT
     Dates: start: 20170831, end: 20171123
  3. PARACETAMOL [Concomitant]
     Active Substance: ACETAMINOPHEN
     Dates: start: 20170511
  4. FOLIC ACID. [Concomitant]
     Active Substance: FOLIC ACID
     Dates: start: 20170925
  5. MIRTAZAPINE. [Concomitant]
     Active Substance: MIRTAZAPINE
     Dosage: NIGHT
     Dates: start: 20170831
  6. HYDROCORTISONE. [Concomitant]
     Active Substance: HYDROCORTISONE
     Dosage: FOR 2 WEEKS
     Dates: start: 20170831, end: 20170907
  7. SIMVASTATIN. [Suspect]
     Active Substance: SIMVASTATIN
     Indication: PRODUCT USED FOR UNKNOWN INDICATION
  8. ESOMEPRAZOLE/ESOMEPRAZOLE MAGNESIUM/ESOMEPRAZOLE SODIUM [Concomitant]
     Dates: start: 20170511
  9. RIVAROXABAN [Concomitant]
     Active Substance: RIVAROXABAN
     Dates: start: 20170707
  10. PREGABALIN. [Concomitant]
     Active Substance: PREGABALIN
     Dates: start: 20170511
  11. DIHYDROCODEINE [Concomitant]
     Active Substance: DIHYDROCODEINE
     Dosage: ONE OR TWO UP TO FOUR TIMES
     Dates: start: 20170511

REACTIONS (2)
  - Rash [Recovered/Resolved]
  - Drug intolerance [Unknown]

NARRATIVE: CASE EVENT DATE: 20171127
